FAERS Safety Report 15084547 (Version 1)
Quarter: 2018Q2

REPORT INFORMATION
  Report Type: Spontaneous
  Country: US (occurrence: US)
  Receive Date: 20180608
  Receipt Date: 20180608
  Transmission Date: 20180711
  Serious: No
  Sender: FDA-Public Use
  Company Number: None

PATIENT
  Age: 35 Year
  Sex: Female

DRUGS (1)
  1. CLOMIPRAMINE [Suspect]
     Active Substance: CLOMIPRAMINE
     Route: 048
     Dates: start: 20180404, end: 20180404

REACTIONS (4)
  - Nausea [None]
  - Somnolence [None]
  - Vomiting [None]
  - Hypersomnia [None]

NARRATIVE: CASE EVENT DATE: 20180404
